FAERS Safety Report 5910895-8 (Version None)
Quarter: 2008Q4

REPORT INFORMATION
  Report Type: 
  Country: None (occurrence: None)
  Receive Date: 20081007
  Receipt Date: 20080630
  Transmission Date: 20090506
  Serious: No
  Sender: FDA-Public Use
  Company Number: US-ASTRAZENECA-2008UW13067

PATIENT
  Age: 79 Year
  Sex: Female
  Weight: 61.2 kg

DRUGS (2)
  1. ARIMIDEX [Suspect]
     Indication: BREAST CANCER
     Route: 048
  2. CHOLESTEROL [Concomitant]

REACTIONS (6)
  - BODY TEMPERATURE INCREASED [None]
  - COUGH [None]
  - HYPOAESTHESIA [None]
  - LUNG DISORDER [None]
  - PALPITATIONS [None]
  - SKIN LACERATION [None]
